FAERS Safety Report 10016342 (Version 1)
Quarter: 2014Q1

REPORT INFORMATION
  Report Type: Spontaneous
  Country: US (occurrence: US)
  Receive Date: 20140317
  Receipt Date: 20140317
  Transmission Date: 20141002
  Serious: No
  Sender: FDA-Public Use
  Company Number: US-PFIZER INC-2014076674

PATIENT
  Age: 51 Year
  Sex: Female
  Weight: 65.76 kg

DRUGS (4)
  1. NEURONTIN [Suspect]
     Indication: DIABETIC NEUROPATHY
     Dosage: UNK, 4X/DAY
     Dates: start: 1999
  2. CELEXA [Concomitant]
     Indication: DEPRESSION
     Dosage: 20 MG, DAILY
  3. WELLBUTRIN [Concomitant]
     Indication: DEPRESSION
     Dosage: 100 MG, DAILY
  4. TEGRETOL [Concomitant]
     Indication: DEPRESSION
     Dosage: 200 MG, DAILY

REACTIONS (1)
  - Drug ineffective [Unknown]
